FAERS Safety Report 21558870 (Version 2)
Quarter: 2023Q1

REPORT INFORMATION
  Report Type: Spontaneous
  Country: JP (occurrence: JP)
  Receive Date: 20221107
  Receipt Date: 20230116
  Transmission Date: 20230418
  Serious: Yes (Other)
  Sender: FDA-Public Use
  Company Number: JP-TAKEDA-2022TJP076624

PATIENT
  Age: 6 Year
  Sex: Male

DRUGS (1)
  1. VPRIV [Suspect]
     Active Substance: VELAGLUCERASE ALFA
     Indication: Gaucher^s disease
     Dosage: 60 INTERNATIONAL UNIT/KILOGRAM, Q2WEEKS
     Route: 041

REACTIONS (8)
  - Aspiration [Unknown]
  - Clonic convulsion [Unknown]
  - Acute respiratory failure [Unknown]
  - Choking [Recovering/Resolving]
  - Peritonitis [Unknown]
  - Myoclonus [Unknown]
  - Peripheral venous disease [Unknown]
  - Procedural vomiting [Unknown]
